FAERS Safety Report 10340946 (Version 1)
Quarter: 2014Q3

REPORT INFORMATION
  Report Type: Spontaneous
  Country: US (occurrence: US)
  Receive Date: 20140724
  Receipt Date: 20140724
  Transmission Date: 20150326
  Serious: No
  Sender: FDA-Public Use
  Company Number: US-MYLANLABS-2013S1018078

PATIENT
  Sex: Male

DRUGS (1)
  1. LEVOTHYROXINE SODIUM TABLETS, USP [Suspect]
     Active Substance: LEVOTHYROXINE SODIUM
     Indication: AUTOIMMUNE THYROIDITIS
     Route: 048

REACTIONS (2)
  - Pollakiuria [Recovered/Resolved]
  - Hyperhidrosis [Recovered/Resolved]
